FAERS Safety Report 10128825 (Version 1)
Quarter: 2014Q2

REPORT INFORMATION
  Report Type: Spontaneous
  Country: US (occurrence: None)
  Receive Date: 20140424
  Receipt Date: 20140424
  Transmission Date: 20141212
  Serious: Yes (Other)
  Sender: FDA-Public Use
  Company Number: None

PATIENT
  Age: 60 Year
  Sex: Female
  Weight: 77.11 kg

DRUGS (1)
  1. BACTRIM DS [Suspect]
     Indication: LYMPHADENOPATHY
     Dosage: 1 TAB BID ORAL?
     Route: 048
     Dates: start: 20140414, end: 20140414

REACTIONS (7)
  - Pyrexia [None]
  - Myalgia [None]
  - Malaise [None]
  - Muscle strain [None]
  - Decreased appetite [None]
  - Headache [None]
  - White blood cell count decreased [None]
